FAERS Safety Report 14635009 (Version 1)
Quarter: 2018Q1

REPORT INFORMATION
  Report Type: Report from Study
  Country: IN (occurrence: IN)
  Receive Date: 20180314
  Receipt Date: 20180314
  Transmission Date: 20180509
  Serious: Yes (Death, Hospitalization)
  Sender: FDA-Public Use
  Company Number: IN-AUROBINDO-AUR-APL-2018-013022

PATIENT
  Age: 57 Year
  Sex: Female
  Weight: 54.6 kg

DRUGS (1)
  1. DOXORUBICIN IV [Suspect]
     Active Substance: DOXORUBICIN
     Indication: OVARIAN CANCER
     Dosage: 75 UNK
     Dates: start: 20180215

REACTIONS (6)
  - Ovarian cancer [Fatal]
  - Ascites [Fatal]
  - Hypotension [Fatal]
  - Intestinal obstruction [Fatal]
  - Condition aggravated [Fatal]
  - Oliguria [Fatal]

NARRATIVE: CASE EVENT DATE: 20180302
